FAERS Safety Report 11663099 (Version 1)
Quarter: 2015Q4

REPORT INFORMATION
  Report Type: Spontaneous
  Country: US (occurrence: US)
  Receive Date: 20151027
  Receipt Date: 20151027
  Transmission Date: 20160304
  Serious: No
  Sender: FDA-Public Use
  Company Number: US-MEDA-2010110017

PATIENT
  Sex: Female

DRUGS (3)
  1. ONSOLIS [Suspect]
     Active Substance: FENTANYL CITRATE
  2. CHEMOTHERAPY [Concomitant]
     Active Substance: UNSPECIFIED INGREDIENT
     Indication: NEOPLASM MALIGNANT
  3. FENTANYL. [Concomitant]
     Active Substance: FENTANYL
     Indication: ORAL PAIN
     Route: 062

REACTIONS (2)
  - Intercepted drug dispensing error [Recovered/Resolved]
  - Drug prescribing error [Recovered/Resolved]

NARRATIVE: CASE EVENT DATE: 20101109
